FAERS Safety Report 7340862-1 (Version None)
Quarter: 2011Q1

REPORT INFORMATION
  Report Type: 
  Country: None (occurrence: None)
  Receive Date: 20110309
  Receipt Date: 20110228
  Transmission Date: 20110831
  Serious: Yes (Hospitalization, Other)
  Sender: FDA-Public Use
  Company Number: US-ELI_LILLY_AND_COMPANY-US201103000385

PATIENT
  Sex: Male

DRUGS (2)
  1. HUMULIN N [Suspect]
     Indication: DIABETES MELLITUS
     Dosage: 23 U, DAILY (1/D)
     Dates: start: 20080101
  2. HUMALOG MIX 50/50 [Suspect]
     Indication: DIABETES MELLITUS
     Dosage: UNK, AS NEEDED
     Dates: start: 20090101

REACTIONS (4)
  - MEDICATION ERROR [None]
  - RENAL TRANSPLANT [None]
  - CORNEAL TRANSPLANT [None]
  - CORNEAL DEGENERATION [None]
